FAERS Safety Report 20226522 (Version 1)
Quarter: 2021Q4

REPORT INFORMATION
  Report Type: Spontaneous
  Country: CN (occurrence: CN)
  Receive Date: 20211224
  Receipt Date: 20211224
  Transmission Date: 20220303
  Serious: Yes (Other)
  Sender: FDA-Public Use
  Company Number: CN-JNJFOC-20211248980

PATIENT

DRUGS (2)
  1. IBUPROFEN [Suspect]
     Active Substance: IBUPROFEN
     Indication: Patent ductus arteriosus
     Dosage: FIRST DOSE IBUPROFEN SUSPENSION DROPS 15 ML, 0.6 G) WAS GIVEN AS FOLLOWS: THE FIRST DOSE WAS 10 MG/K
     Route: 048
  2. IBUPROFEN [Suspect]
     Active Substance: IBUPROFEN
     Dosage: SECOND AND THIRD DOSES
     Route: 048

REACTIONS (9)
  - Necrotising colitis [Unknown]
  - Pneumonia [Unknown]
  - Bronchopulmonary dysplasia [Unknown]
  - Product use in unapproved indication [Unknown]
  - Off label use [Unknown]
  - Intraventricular haemorrhage [Unknown]
  - Renal injury [Unknown]
  - Feeding intolerance [Unknown]
  - Therapeutic response unexpected [Unknown]
